FAERS Safety Report 24817921 (Version 4)
Quarter: 2025Q1

REPORT INFORMATION
  Report Type: Spontaneous
  Country: US (occurrence: US)
  Receive Date: 20250108
  Receipt Date: 20250131
  Transmission Date: 20250409
  Serious: Yes (Hospitalization, Other)
  Sender: SANOFI AVENTIS
  Company Number: US-SA-2025SA005659

PATIENT
  Age: 16 Year
  Sex: Male

DRUGS (8)
  1. ELOCTATE [Suspect]
     Active Substance: EFMOROCTOCOG ALFA
     Indication: Factor VIII deficiency
     Route: 042
     Dates: start: 202212
  2. ELOCTATE [Suspect]
     Active Substance: EFMOROCTOCOG ALFA
     Indication: Factor VIII deficiency
     Route: 042
     Dates: start: 202212
  3. ELOCTATE [Suspect]
     Active Substance: EFMOROCTOCOG ALFA
     Route: 042
  4. ELOCTATE [Suspect]
     Active Substance: EFMOROCTOCOG ALFA
     Route: 042
  5. ELOCTATE [Suspect]
     Active Substance: EFMOROCTOCOG ALFA
     Route: 042
  6. ELOCTATE [Suspect]
     Active Substance: EFMOROCTOCOG ALFA
     Route: 042
  7. ELOCTATE [Suspect]
     Active Substance: EFMOROCTOCOG ALFA
     Dosage: 2225 U, QD
     Route: 042
  8. ELOCTATE [Suspect]
     Active Substance: EFMOROCTOCOG ALFA
     Dosage: 2225 U, QD
     Route: 042

REACTIONS (4)
  - Haemarthrosis [Unknown]
  - Haemarthrosis [Recovered/Resolved]
  - Haemorrhage [Recovered/Resolved]
  - Haemorrhage [Unknown]

NARRATIVE: CASE EVENT DATE: 20241226
